FAERS Safety Report 5696277-5 (Version None)
Quarter: 2008Q2

REPORT INFORMATION
  Report Type: 
  Country: None (occurrence: None)
  Receive Date: 20080407
  Receipt Date: 20080326
  Transmission Date: 20081010
  Serious: Yes (Hospitalization)
  Sender: FDA-Public Use
  Company Number: US-ELI_LILLY_AND_COMPANY-US200803005874

PATIENT
  Sex: Female

DRUGS (4)
  1. FORTEO [Suspect]
     Indication: OSTEOPOROSIS
     Dosage: UNK, UNK
     Dates: start: 20071001
  2. CALCIUM CITRATE [Concomitant]
     Dosage: 1000 MG, UNK
  3. VITAMIN D3 [Concomitant]
     Dosage: 2000 IU, UNK
  4. FISH OIL [Concomitant]

REACTIONS (4)
  - ARTHRALGIA [None]
  - GASTROOESOPHAGEAL REFLUX DISEASE [None]
  - PAIN IN EXTREMITY [None]
  - PROCEDURAL PAIN [None]
